FAERS Safety Report 5607606-2 (Version None)
Quarter: 2008Q1

REPORT INFORMATION
  Report Type: 
  Country: None (occurrence: None)
  Receive Date: 20080125
  Receipt Date: 20080110
  Transmission Date: 20080703
  Serious: Yes (Hospitalization)
  Sender: FDA-Public Use
  Company Number: DSA_31334_2008

PATIENT
  Sex: Female

DRUGS (10)
  1. MONO-TILDIEM (MONO-TILDIEM - DILTIAZEM HYDROCHLORIDE) 300 MG (NOT SPEC [Suspect]
     Indication: ANGINA UNSTABLE
     Dosage: (DF ORAL)
     Route: 048
     Dates: end: 20070926
  2. PROPRANOLOL [Suspect]
     Indication: HYPERTENSION
     Dosage: (40 MG BID ORAL)
     Route: 048
     Dates: end: 20070926
  3. ADANCOR [Concomitant]
  4. ALDACTONE [Concomitant]
  5. CRESTOR [Concomitant]
  6. TEMESTA /00273201/ [Concomitant]
  7. DAFALGAN /00020001/ [Concomitant]
  8. DISCOTRINE [Concomitant]
  9. HELICIDINE [Concomitant]
  10. PLAVIX [Concomitant]

REACTIONS (4)
  - BRADYCARDIA [None]
  - DRUG INTERACTION [None]
  - MALAISE [None]
  - WHITE BLOOD CELL COUNT INCREASED [None]
